FAERS Safety Report 12435185 (Version 1)
Quarter: 2016Q2

REPORT INFORMATION
  Report Type: Spontaneous
  Country: US (occurrence: US)
  Receive Date: 20160603
  Receipt Date: 20160603
  Transmission Date: 20160815
  Serious: No
  Sender: FDA-Public Use
  Company Number: US-ROCHE-1638587

PATIENT
  Sex: Female

DRUGS (1)
  1. KLONOPIN [Suspect]
     Active Substance: CLONAZEPAM
     Indication: INSOMNIA
     Route: 065

REACTIONS (7)
  - Osteomyelitis [Unknown]
  - Anxiety [Unknown]
  - Fungal infection [Unknown]
  - Paraesthesia [Unknown]
  - Fear of death [Unknown]
  - Somnolence [Unknown]
  - Depression [Unknown]
